FAERS Safety Report 9382072 (Version 1)
Quarter: 2013Q3

REPORT INFORMATION
  Report Type: Report from Study
  Country: US (occurrence: US)
  Receive Date: 20130703
  Receipt Date: 20130703
  Transmission Date: 20140515
  Serious: Yes (Hospitalization)
  Sender: FDA-Public Use
  Company Number: US-US-EMD SERONO, INC.-7221447

PATIENT
  Age: 54 Year
  Sex: Male

DRUGS (2)
  1. REBIF [Suspect]
     Indication: MULTIPLE SCLEROSIS
     Route: 058
     Dates: start: 20110830
  2. TYLENOL                            /00020001/ [Concomitant]
     Indication: PREMEDICATION

REACTIONS (1)
  - Cerebrovascular accident [Recovered/Resolved]
